FAERS Safety Report 25796851 (Version 1)
Quarter: 2025Q3

REPORT INFORMATION
  Report Type: Spontaneous
  Country: US (occurrence: US)
  Receive Date: 20250912
  Receipt Date: 20250912
  Transmission Date: 20251021
  Serious: No
  Sender: SANOFI AVENTIS
  Company Number: US-SA-2025SA271906

PATIENT
  Age: 75 Year
  Sex: Female

DRUGS (12)
  1. DUPIXENT [Suspect]
     Active Substance: DUPILUMAB
     Indication: Dermatitis atopic
     Dosage: 300 MG, QOW
     Route: 058
  2. BRIMONIDINE [Concomitant]
     Active Substance: BRIMONIDINE TARTRATE
  3. CARVEDILOL [Concomitant]
     Active Substance: CARVEDILOL
  4. DORZOLAMIDE [Concomitant]
     Active Substance: DORZOLAMIDE
  5. FAMOTIDINE [Concomitant]
     Active Substance: FAMOTIDINE
  6. FUROSEMIDE [Concomitant]
     Active Substance: FUROSEMIDE
  7. JARDIANCE [Concomitant]
     Active Substance: EMPAGLIFLOZIN
  8. LATANOPROST [Concomitant]
     Active Substance: LATANOPROST
  9. POTASSIUM CHLORATE [Concomitant]
     Active Substance: POTASSIUM CHLORATE
  10. RHOPRESSA [Concomitant]
     Active Substance: NETARSUDIL MESYLATE
  11. ROSUVASTATIN [Concomitant]
     Active Substance: ROSUVASTATIN
  12. SPIRONOLACTONE [Concomitant]
     Active Substance: SPIRONOLACTONE

REACTIONS (1)
  - Injection site pain [Not Recovered/Not Resolved]

NARRATIVE: CASE EVENT DATE: 20250814
